FAERS Safety Report 9139057 (Version 1)
Quarter: 2013Q1

REPORT INFORMATION
  Report Type: Spontaneous
  Country: ES (occurrence: ES)
  Receive Date: 20130305
  Receipt Date: 20130305
  Transmission Date: 20140127
  Serious: Yes (Death)
  Sender: FDA-Public Use
  Company Number: ES-ELI_LILLY_AND_COMPANY-ES201302009676

PATIENT
  Age: 73 Year
  Sex: Female

DRUGS (2)
  1. PROZAC [Suspect]
     Dosage: UNK, UNKNOWN
  2. NORFENAZIN [Concomitant]

REACTIONS (1)
  - Myocardial ischaemia [Fatal]
